FAERS Safety Report 8866696 (Version 1)
Quarter: 2012Q4

REPORT INFORMATION
  Report Type: 
  Country: US (occurrence: US)
  Receive Date: 20121025
  Receipt Date: 20121025
  Transmission Date: 20130627
  Serious: No
  Sender: FDA-Public Use
  Company Number: US-AMGEN-USASP2012012988

PATIENT
  Age: 51 Year
  Sex: Female

DRUGS (9)
  1. ENBREL [Suspect]
     Indication: RHEUMATOID ARTHRITIS
     Dosage: 50 mg, qwk
     Route: 058
  2. PANTOPRAZOLE [Concomitant]
     Dosage: 20 mg, UNK
  3. MELOXICAM [Concomitant]
     Dosage: 15 mg, UNK
  4. METHOTREXATE [Concomitant]
     Dosage: 2.5 mg, UNK
  5. DILTIAZEM [Concomitant]
     Dosage: 120 mg, UNK
  6. LOSARTAN HCT [Concomitant]
     Dosage: UNK
  7. VITAMIN C ACEROLA [Concomitant]
     Dosage: 500 mg, UNK
  8. FOLIC ACID [Concomitant]
     Dosage: UNK
  9. TRAMADOL HCL [Concomitant]
     Dosage: 100 mg, UNK

REACTIONS (1)
  - Drug effect decreased [Unknown]
